APPROVED DRUG PRODUCT: RECORLEV
Active Ingredient: LEVOKETOCONAZOLE
Strength: 150MG
Dosage Form/Route: TABLET;ORAL
Application: N214133 | Product #001
Applicant: STRONGBRIDGE DUBLIN LTD
Approved: Dec 30, 2021 | RLD: Yes | RS: Yes | Type: RX

PATENTS:
Patent 12377096 | Expires: Mar 2, 2040
Patent 11278547 | Expires: Mar 2, 2040
Patent 11478471 | Expires: Jan 10, 2026
Patent 10835530 | Expires: Jan 10, 2026
Patent 10517868 | Expires: Jan 10, 2026
Patent 10098877 | Expires: Jan 10, 2026
Patent 9918984 | Expires: May 3, 2028
Patent 11903940 | Expires: Mar 2, 2040
Patent 11020393 | Expires: Mar 2, 2040

EXCLUSIVITY:
Code: NCE* | Date: Dec 30, 2026
Code: ODE-385 | Date: Dec 30, 2028